FAERS Safety Report 19291129 (Version 1)
Quarter: 2021Q2

REPORT INFORMATION
  Report Type: Report from Study
  Country: IT (occurrence: IT)
  Receive Date: 20210523
  Receipt Date: 20210523
  Transmission Date: 20210717
  Serious: Yes (Other)
  Sender: FDA-Public Use
  Company Number: IT-TEVA-2021-IT-1913050

PATIENT
  Age: 55 Year
  Sex: Female

DRUGS (5)
  1. FLUOROURACILE TEVA [Suspect]
     Active Substance: FLUOROURACIL
     Indication: GASTROINTESTINAL CARCINOMA
     Route: 042
     Dates: start: 20201124, end: 20201124
  2. MYCOSTATIN 100.000 U.I./ML SOSPENSIONE ORALE [Concomitant]
  3. PANTORC 40 MG COMPRESSE GASTRORESISTENTI [Concomitant]
  4. METOCLOPRAMIDE S.A.L.F. 10 MG/2 ML SOLUZIONE INIETTABILE [Concomitant]
  5. SOLDESAM [Concomitant]
     Active Substance: DEXAMETHASONE

REACTIONS (2)
  - Abdominal pain [Recovering/Resolving]
  - Diarrhoea [Recovering/Resolving]

NARRATIVE: CASE EVENT DATE: 20201203
